FAERS Safety Report 9996492 (Version 2)
Quarter: 2014Q1

REPORT INFORMATION
  Report Type: Spontaneous
  Country: CH (occurrence: CH)
  Receive Date: 20140311
  Receipt Date: 20140318
  Transmission Date: 20141002
  Serious: Yes (Other)
  Sender: FDA-Public Use
  Company Number: PHHY2014CH025992

PATIENT
  Age: 74 Year
  Sex: Female

DRUGS (8)
  1. CO-AMOXICILLIN SANDOZ [Suspect]
     Indication: COUGH
     Dosage: 1 G, BID
     Dates: start: 20140210, end: 20140216
  2. CO-AMOXICILLIN SANDOZ [Suspect]
     Indication: PYREXIA
  3. ASPIRIN CARDIO [Concomitant]
     Dosage: 100  UNK
  4. METO ZEROK [Concomitant]
     Dosage: 0.5  UNK
  5. COVERSUM [Concomitant]
     Dosage: 2.5 MG, UNK
  6. METFORMIN [Concomitant]
  7. ZURCAL [Concomitant]
     Dosage: 20, UNK
  8. ATORVASTATIN [Concomitant]
     Dosage: 40, UNK

REACTIONS (10)
  - Oropharyngeal pain [Unknown]
  - Faeces discoloured [Unknown]
  - Haemorrhoids [Recovering/Resolving]
  - Oral discomfort [Unknown]
  - Throat irritation [Recovering/Resolving]
  - Dyspepsia [Recovering/Resolving]
  - Odynophagia [Unknown]
  - Eating disorder [Unknown]
  - Wrong technique in drug usage process [Unknown]
  - Diarrhoea [Unknown]
